FAERS Safety Report 18212146 (Version 2)
Quarter: 2020Q3

REPORT INFORMATION
  Report Type: Spontaneous
  Country: FR (occurrence: FR)
  Receive Date: 20200831
  Receipt Date: 20200917
  Transmission Date: 20201103
  Serious: Yes (Hospitalization)
  Sender: FDA-Public Use
  Company Number: FR-009507513-2008FRA012735

PATIENT
  Age: 65 Year
  Sex: Male
  Weight: 69.5 kg

DRUGS (13)
  1. KEYTRUDA [Suspect]
     Active Substance: PEMBROLIZUMAB
     Indication: BRONCHIAL CARCINOMA
     Dosage: 200 MILLICURIE, CYCLICAL
     Route: 041
     Dates: start: 20200629, end: 20200629
  2. PANTOPRAZOLE [Concomitant]
     Active Substance: PANTOPRAZOLE
  3. VERSATIS [Concomitant]
     Active Substance: LIDOCAINE
  4. ZOPHREN (ONDANSETRON HYDROCHLORIDE) [Concomitant]
     Active Substance: ONDANSETRON HYDROCHLORIDE
  5. EMEND [Concomitant]
     Active Substance: APREPITANT
  6. COLCHICINE. [Concomitant]
     Active Substance: COLCHICINE
  7. LAROXYL [Concomitant]
     Active Substance: AMITRIPTYLINE HYDROCHLORIDE
  8. ALIMTA [Suspect]
     Active Substance: PEMETREXED DISODIUM
     Indication: BRONCHIAL CARCINOMA
     Dosage: 915 MILLIGRAM, CYCLICAL
     Route: 041
     Dates: start: 20200629, end: 20200629
  9. SOLU?MEDROL [Concomitant]
     Active Substance: METHYLPREDNISOLONE SODIUM SUCCINATE
  10. CARBOPLATIN. [Suspect]
     Active Substance: CARBOPLATIN
     Indication: BRONCHIAL CARCINOMA
     Dosage: 485 MILLIGRAM, QD (STRENGTH: 10 MG/ML)
     Route: 041
     Dates: start: 20200629, end: 20200629
  11. INNOHEP [Concomitant]
     Active Substance: TINZAPARIN SODIUM
  12. CORDARONE [Concomitant]
     Active Substance: AMIODARONE HYDROCHLORIDE
  13. PREGABALIN. [Concomitant]
     Active Substance: PREGABALIN

REACTIONS (2)
  - Lip ulceration [Not Recovered/Not Resolved]
  - Rash [Not Recovered/Not Resolved]

NARRATIVE: CASE EVENT DATE: 20200707
